FAERS Safety Report 7643108-X (Version None)
Quarter: 2011Q3

REPORT INFORMATION
  Report Type: 
  Country: None (occurrence: None)
  Receive Date: 20110728
  Receipt Date: 20110725
  Transmission Date: 20111222
  Serious: Yes (Hospitalization)
  Sender: FDA-Public Use
  Company Number: US-BRISTOL-MYERS SQUIBB COMPANY-15922123

PATIENT
  Sex: Male

DRUGS (4)
  1. LISINOPRIL [Concomitant]
  2. GADOLINIUM-DTPA [Suspect]
  3. METFORMIN HCL [Concomitant]
  4. YERVOY [Suspect]
     Dosage: 1DF= RECIEVED ONE DOSE .

REACTIONS (3)
  - HYPOTENSION [None]
  - DIARRHOEA [None]
  - RENAL FAILURE ACUTE [None]
